FAERS Safety Report 5304446-9 (Version None)
Quarter: 2007Q2

REPORT INFORMATION
  Report Type: 
  Country: None (occurrence: None)
  Receive Date: 20070417
  Receipt Date: 20070417
  Transmission Date: 20071010
  Serious: Yes (Hospitalization)
  Sender: FDA-Public Use
  Company Number: None

PATIENT
  Sex: Male

DRUGS (4)
  1. ARIXTRA [Suspect]
     Indication: DEEP VEIN THROMBOSIS
     Dosage: 7.5 MG QD SQ
     Route: 058
     Dates: start: 20070125, end: 20070127
  2. ARIXTRA [Suspect]
     Indication: DISEASE RECURRENCE
     Dosage: 7.5 MG QD SQ
     Route: 058
     Dates: start: 20070125, end: 20070127
  3. WARFARIN SODIUM [Suspect]
     Indication: DEEP VEIN THROMBOSIS
     Dosage: 2.5 EXCEPT TH,SU 5 MG QD PO
     Route: 048
  4. WARFARIN SODIUM [Suspect]
     Indication: DISEASE RECURRENCE
     Dosage: 2.5 EXCEPT TH,SU 5 MG QD PO
     Route: 048

REACTIONS (4)
  - DEVICE RELATED INFECTION [None]
  - HAEMATOMA [None]
  - MEDICAL DEVICE SITE REACTION [None]
  - PACEMAKER COMPLICATION [None]
